FAERS Safety Report 21383005 (Version 2)
Quarter: 2022Q4

REPORT INFORMATION
  Report Type: Spontaneous
  Country: US (occurrence: US)
  Receive Date: 20220927
  Receipt Date: 20221021
  Transmission Date: 20230113
  Serious: No
  Sender: FDA-Public Use
  Company Number: US-SA-SAC20220922001493

PATIENT
  Age: 84 Year
  Sex: Male
  Weight: 61.678 kg

DRUGS (18)
  1. CEREZYME [Suspect]
     Active Substance: IMIGLUCERASE
     Indication: Gaucher^s disease
     Dosage: 3600 IU, Q4W
     Route: 041
     Dates: start: 20050228
  2. CEREZYME [Suspect]
     Active Substance: IMIGLUCERASE
     Dosage: 3600 IU, Q4W
     Route: 041
     Dates: start: 20060907
  3. FAMOTIDINE [Concomitant]
     Active Substance: FAMOTIDINE
     Dosage: UNKNOWN
  4. SODIUM CHLORIDE [Concomitant]
     Active Substance: SODIUM CHLORIDE
     Dosage: UNKNOWN
  5. STERILE WATER [Concomitant]
     Active Substance: WATER
     Dosage: UNKNOWN
  6. EPINEPHRINE [Concomitant]
     Active Substance: EPINEPHRINE
     Dosage: UNKNOWN
  7. CLONIDINE [Concomitant]
     Active Substance: CLONIDINE
     Dosage: UNKNOWN
  8. NORVASC [Concomitant]
     Active Substance: AMLODIPINE BESYLATE
     Dosage: UNKNOWN
  9. INDAPAMIDE [Concomitant]
     Active Substance: INDAPAMIDE
  10. TIMOLOL [Concomitant]
     Active Substance: TIMOLOL
     Dosage: UNKNOWN
  11. ALLOPURINOL [Concomitant]
     Active Substance: ALLOPURINOL
     Dosage: UNKNOWN
  12. ENALAPRILAT [Concomitant]
     Active Substance: ENALAPRILAT
     Dosage: UNKNOWN
  13. SOLU-MEDROL [Concomitant]
     Active Substance: METHYLPREDNISOLONE SODIUM SUCCINATE
  14. CARVEDILOL [Concomitant]
     Active Substance: CARVEDILOL
     Dosage: UNK
  15. METOPROLOL SUCCINATE [Concomitant]
     Active Substance: METOPROLOL SUCCINATE
     Dosage: UNK
  16. TIMOLOL MALEATE [Concomitant]
     Active Substance: TIMOLOL MALEATE
     Dosage: UNK DROP, QD
  17. AMLODIPINE BESYLATE [Concomitant]
     Active Substance: AMLODIPINE BESYLATE
  18. CLONIDINE HYDROCHLORIDE [Concomitant]
     Active Substance: CLONIDINE HYDROCHLORIDE

REACTIONS (3)
  - Peripheral swelling [Unknown]
  - Illness [Unknown]
  - Inappropriate schedule of product administration [Unknown]
